FAERS Safety Report 21930097 (Version 1)
Quarter: 2023Q1

REPORT INFORMATION
  Report Type: Spontaneous
  Country: US (occurrence: US)
  Receive Date: 20230131
  Receipt Date: 20230131
  Transmission Date: 20230417
  Serious: No
  Sender: FDA-Public Use
  Company Number: US-SANOFI-01462978

PATIENT
  Age: 61 Year
  Sex: Female

DRUGS (2)
  1. CEREZYME [Suspect]
     Active Substance: IMIGLUCERASE
     Indication: Gaucher^s disease
     Dosage: 4500 MG, QOW
     Route: 042
     Dates: start: 20070315, end: 20221213
  2. CEREZYME [Suspect]
     Active Substance: IMIGLUCERASE
     Dosage: 4500 MG, QOW
     Route: 042
     Dates: start: 20221227

REACTIONS (1)
  - COVID-19 [Recovered/Resolved]

NARRATIVE: CASE EVENT DATE: 20221201
